FAERS Safety Report 7909965-4 (Version None)
Quarter: 2011Q4

REPORT INFORMATION
  Report Type: 
  Country: None (occurrence: None)
  Receive Date: 20111111
  Receipt Date: 20111108
  Transmission Date: 20120403
  Serious: Yes (Other)
  Sender: FDA-Public Use
  Company Number: CA-ABBOTT-11P-028-0840847-00

PATIENT
  Age: 36 Year
  Sex: Female

DRUGS (1)
  1. SYNTHROID [Suspect]
     Indication: PRODUCT USED FOR UNKNOWN INDICATION

REACTIONS (5)
  - HEART RATE INCREASED [None]
  - TREMOR [None]
  - FUNGAL INFECTION [None]
  - PALPITATIONS [None]
  - FEELING ABNORMAL [None]
